FAERS Safety Report 8827787 (Version 1)
Quarter: 2012Q4

REPORT INFORMATION
  Report Type: 
  Country: US (occurrence: US)
  Receive Date: 20121005
  Receipt Date: 20121005
  Transmission Date: 20130627
  Serious: No
  Sender: FDA-Public Use
  Company Number: US-VERTEX PHARMACEUTICAL INC.-2012-021717

PATIENT
  Age: 34 Year
  Sex: Female

DRUGS (1)
  1. KALYDECO [Suspect]
     Indication: CYSTIC FIBROSIS
     Dosage: 150 mg, UNK
     Route: 048
     Dates: start: 20120301

REACTIONS (2)
  - Blood prolactin increased [Not Recovered/Not Resolved]
  - Galactorrhoea [Not Recovered/Not Resolved]
